FAERS Safety Report 6584824-0 (Version None)
Quarter: 2010Q1

REPORT INFORMATION
  Report Type: 
  Country: None (occurrence: None)
  Receive Date: 20100217
  Receipt Date: 20100208
  Transmission Date: 20100710
  Serious: Yes (Hospitalization)
  Sender: FDA-Public Use
  Company Number: FR-ASTRAZENECA-2010SE05812

PATIENT
  Age: 23683 Day
  Sex: Male

DRUGS (4)
  1. ATACAND [Suspect]
     Indication: HYPERTENSION
     Route: 048
     Dates: start: 20091202, end: 20091207
  2. KEPPRA [Suspect]
     Indication: MENINGORRHAGIA
     Route: 048
     Dates: start: 20091117, end: 20091207
  3. DOLIPRANE [Concomitant]
     Indication: PAIN
     Route: 048
  4. OFLOCET [Concomitant]
     Indication: SERRATIA INFECTION
     Route: 048
     Dates: start: 20091206, end: 20091211

REACTIONS (1)
  - CYTOLYTIC HEPATITIS [None]
